FAERS Safety Report 7575073-8 (Version None)
Quarter: 2011Q2

REPORT INFORMATION
  Report Type: 
  Country: None (occurrence: None)
  Receive Date: 20110627
  Receipt Date: 20110610
  Transmission Date: 20111010
  Serious: Yes (Death, Hospitalization, Other)
  Sender: FDA-Public Use
  Company Number: US-BAYER-2011-006316

PATIENT
  Age: 59 Year
  Sex: Female
  Weight: 75.5 kg

DRUGS (38)
  1. INSULIN GLARGINE [Concomitant]
     Indication: PRODUCT USED FOR UNKNOWN INDICATION
     Dosage: 10 U, QD
     Route: 048
  2. MAGNESIUM SULFATE [Concomitant]
     Indication: PRODUCT USED FOR UNKNOWN INDICATION
     Dosage: 4 MEQ, UNK
     Route: 042
  3. LISINOPRIL [Concomitant]
     Dosage: 40 MG, UNK
     Route: 048
     Dates: start: 20070314
  4. ROCEPHIN [Concomitant]
     Dosage: 1 G, UNK
     Dates: start: 20070316
  5. TRASYLOL [Suspect]
     Indication: AORTIC VALVE REPLACEMENT
  6. MULTIVITAMIN PREPARATION + MINERAL SUPPLEMENT [Concomitant]
     Indication: PRODUCT USED FOR UNKNOWN INDICATION
     Dosage: 1 DF, QD
     Route: 048
  7. AMIODARONE HCL [Concomitant]
     Indication: PRODUCT USED FOR UNKNOWN INDICATION
     Dosage: 200 MG, UNK
     Route: 048
  8. VERSED [Concomitant]
     Indication: PRODUCT USED FOR UNKNOWN INDICATION
     Dosage: LESS THAN 4MG
     Route: 042
     Dates: start: 20070314
  9. VASOPRESSIN [Concomitant]
     Indication: PRODUCT USED FOR UNKNOWN INDICATION
     Dosage: 100 UNITS AT 4 UNITS PER HOUR, UNK
  10. RED BLOOD CELLS [Concomitant]
     Indication: PRODUCT USED FOR UNKNOWN INDICATION
     Dosage: 10 U, UNK
     Route: 042
     Dates: start: 20070321
  11. LOPRESSOR [Concomitant]
     Dosage: 5 MG, UNK
     Route: 042
     Dates: start: 20070314
  12. DIPRIVAN [Concomitant]
     Dosage: TITRATED DRIP
     Route: 042
     Dates: start: 20070314
  13. TRASYLOL [Suspect]
     Indication: CARDIAC OPERATION
     Dosage: 200 ML, UNK
     Route: 042
     Dates: start: 20070321
  14. TRASYLOL [Suspect]
     Indication: CORONARY ENDARTERECTOMY
  15. PAVULON [Concomitant]
     Indication: PRODUCT USED FOR UNKNOWN INDICATION
     Dosage: LESS THAN 13 UNK
  16. TRASYLOL [Suspect]
     Indication: INTRA-AORTIC BALLOON PLACEMENT
  17. LANSOPRAZOLE [Concomitant]
     Indication: PRODUCT USED FOR UNKNOWN INDICATION
     Dosage: 30 MG, QD
     Route: 048
  18. NOREPINEPHRINE BITARTRATE [Concomitant]
     Indication: PRODUCT USED FOR UNKNOWN INDICATION
     Dosage: 8 MG, UNK
     Route: 042
  19. HEPARIN [Concomitant]
     Dosage: TITRATED DRIP
     Route: 042
     Dates: start: 20070314
  20. TRASYLOL [Suspect]
     Indication: CORONARY ARTERY BYPASS
     Dosage: 50 ML, UNK
     Route: 042
     Dates: start: 20070321
  21. AMIODARONE HCL [Concomitant]
     Dosage: 150 MG, UNK
     Route: 042
  22. METFORMIN HCL [Concomitant]
     Indication: PRODUCT USED FOR UNKNOWN INDICATION
     Dosage: 1000 MG, UNK
     Route: 048
  23. MILRINONE [Concomitant]
     Indication: PRODUCT USED FOR UNKNOWN INDICATION
     Dosage: 20 MG AT 0.5 MICROGRAMS/KILOGRAMS/MINUTE
     Route: 042
  24. EPINEPHRINE [Concomitant]
     Indication: PRODUCT USED FOR UNKNOWN INDICATION
     Dosage: 0.1 MICROGRAMS/KILOGRAM/MINUTE
     Route: 042
  25. PROTAMINE SULFATE [Concomitant]
     Indication: PRODUCT USED FOR UNKNOWN INDICATION
     Dosage: 30 MG, UNK
  26. NORVASC [Concomitant]
     Dosage: 10 MG, UNK
     Route: 048
     Dates: start: 20070314
  27. PROPOFOL [Concomitant]
     Indication: PRODUCT USED FOR UNKNOWN INDICATION
     Dosage: 4 ML, UNK
     Route: 042
  28. FRESH FROZEN PLASMA [Concomitant]
     Indication: PRODUCT USED FOR UNKNOWN INDICATION
     Dosage: 6 U, UNK
     Route: 042
     Dates: start: 20070321
  29. ACETYLSALICYLIC ACID SRT [Concomitant]
     Indication: PRODUCT USED FOR UNKNOWN INDICATION
     Dosage: 325 MG, QD
     Route: 048
  30. ALBUMIN (HUMAN) [Concomitant]
     Indication: PRODUCT USED FOR UNKNOWN INDICATION
     Dosage: 12.5 G, QD
     Route: 048
  31. LEVOPHED [Concomitant]
     Indication: PRODUCT USED FOR UNKNOWN INDICATION
     Dosage: 0.1 MG, UNK
     Route: 042
  32. PLATELETS [Concomitant]
     Indication: PRODUCT USED FOR UNKNOWN INDICATION
     Dosage: 10 U, UNK
     Route: 042
     Dates: start: 20070321
  33. TRASYLOL [Suspect]
     Indication: CORONARY REVASCULARISATION
  34. METOCLOPRAMIDE [Concomitant]
     Indication: PRODUCT USED FOR UNKNOWN INDICATION
     Dosage: 10 MG, QD
     Route: 048
  35. FENTANYL [Concomitant]
     Indication: PRODUCT USED FOR UNKNOWN INDICATION
     Dosage: 75 MG, UNK
     Route: 042
  36. INSULIN [INSULIN] [Concomitant]
     Indication: PRODUCT USED FOR UNKNOWN INDICATION
     Dosage: 100 UNITS AT 1 UNIT/MILLILITER AT 20 UNITS PER HOUR, UNK
     Route: 042
  37. CEFUROXIME [Concomitant]
     Indication: PRODUCT USED FOR UNKNOWN INDICATION
     Dosage: 2 G, UNK
     Route: 042
  38. LIDOCAINE [Concomitant]
     Indication: PRODUCT USED FOR UNKNOWN INDICATION
     Dosage: 100 MG, UNK
     Route: 042

REACTIONS (6)
  - RENAL FAILURE ACUTE [None]
  - PAIN [None]
  - DEATH [None]
  - OEDEMA [None]
  - RENAL FAILURE [None]
  - INJURY [None]
